FAERS Safety Report 23437514 (Version 1)
Quarter: 2024Q1

REPORT INFORMATION
  Report Type: Spontaneous
  Country: CO (occurrence: CO)
  Receive Date: 20240124
  Receipt Date: 20240124
  Transmission Date: 20240409
  Serious: Yes (Other)
  Sender: FDA-Public Use
  Company Number: CO-JNJFOC-20240158350

PATIENT
  Age: 63 Year
  Sex: Male
  Weight: 49 kg

DRUGS (4)
  1. INVEGA [Suspect]
     Active Substance: PALIPERIDONE
     Indication: Schizophrenia
     Route: 048
  2. LEVOMEPROMAZINE [Concomitant]
     Active Substance: LEVOMEPROMAZINE
  3. VALPROIC ACID [Concomitant]
     Active Substance: VALPROIC ACID
  4. CLOZAPINE [Concomitant]
     Active Substance: CLOZAPINE

REACTIONS (2)
  - Schizophrenia [Not Recovered/Not Resolved]
  - Product dose omission issue [Unknown]
